FAERS Safety Report 17160326 (Version 1)
Quarter: 2019Q4

REPORT INFORMATION
  Report Type: Report from Study
  Country: None (occurrence: GB)
  Receive Date: 20191216
  Receipt Date: 20191216
  Transmission Date: 20200122
  Serious: Yes (Death, Hospitalization)
  Sender: FDA-Public Use
  Company Number: GB-ABBVIE-18P-167-3093764-00

PATIENT
  Age: 74 Year
  Sex: Male

DRUGS (2)
  1. IBRUTINIB [Suspect]
     Active Substance: IBRUTINIB
     Indication: CHRONIC LYMPHOCYTIC LEUKAEMIA
     Route: 048
     Dates: start: 20160809, end: 20171228
  2. RITUXIMAB. [Concomitant]
     Active Substance: RITUXIMAB
     Indication: CHRONIC LYMPHOCYTIC LEUKAEMIA
     Route: 042
     Dates: start: 20160810

REACTIONS (1)
  - Dermatitis exfoliative generalised [Fatal]

NARRATIVE: CASE EVENT DATE: 20171101
